FAERS Safety Report 9784773 (Version 3)
Quarter: 2014Q2

REPORT INFORMATION
  Report Type: Spontaneous
  Country: JP (occurrence: JP)
  Receive Date: 20131227
  Receipt Date: 20140417
  Transmission Date: 20141212
  Serious: Yes (Other)
  Sender: FDA-Public Use
  Company Number: JP-AMGEN-JPNSP2013090845

PATIENT
  Age: 78 Year
  Sex: Male

DRUGS (5)
  1. RANMARK [Suspect]
     Indication: METASTASES TO BONE
     Dosage: 120 MG, UNK
     Route: 058
     Dates: start: 20120713
  2. GEMZAR [Concomitant]
     Dosage: 1500 MG, QD
     Route: 041
     Dates: start: 20131203, end: 20140223
  3. DOCETAXEL [Concomitant]
     Dosage: 90 MG, QD
     Route: 041
     Dates: start: 20130226, end: 20130729
  4. ALIMTA [Concomitant]
     Dosage: 750 MG, QD
     Route: 041
     Dates: start: 20121113, end: 20130211
  5. GEMCITABINE HYDROCHLORIDE [Concomitant]
     Dosage: 1500 MG, QD
     Route: 041
     Dates: start: 20131203, end: 20140223

REACTIONS (1)
  - Osteonecrosis of jaw [Not Recovered/Not Resolved]
